FAERS Safety Report 7362716-7 (Version None)
Quarter: 2011Q1

REPORT INFORMATION
  Report Type: 
  Country: None (occurrence: None)
  Receive Date: 20110321
  Receipt Date: 20110309
  Transmission Date: 20110831
  Serious: Yes (Hospitalization)
  Sender: FDA-Public Use
  Company Number: CH-BIOGENIDEC-2011BI008990

PATIENT
  Age: 28 Year
  Sex: Female

DRUGS (3)
  1. CITALOPRAM [Concomitant]
     Indication: DEPRESSION
     Dates: start: 20100101
  2. AVONEX [Suspect]
     Indication: RELAPSING-REMITTING MULTIPLE SCLEROSIS
     Route: 030
     Dates: end: 20110304
  3. ETHINYL ESTRADIOL [Concomitant]
     Indication: CONTRACEPTION

REACTIONS (3)
  - BLOOD BILIRUBIN INCREASED [None]
  - ASPARTATE AMINOTRANSFERASE INCREASED [None]
  - ALANINE AMINOTRANSFERASE INCREASED [None]
